FAERS Safety Report 18907085 (Version 2)
Quarter: 2021Q1

REPORT INFORMATION
  Report Type: Other
  Country: SE (occurrence: SE)
  Receive Date: 20210218
  Receipt Date: 20210324
  Transmission Date: 20210420
  Serious: Yes (Other)
  Sender: FDA-Public Use
  Company Number: SE-CELLTRION INC.-2021SE001678

PATIENT

DRUGS (1)
  1. RITEMVIA [Suspect]
     Active Substance: RITUXIMAB
     Indication: MULTIPLE SCLEROSIS
     Dosage: 500 MG
     Dates: start: 20190701

REACTIONS (2)
  - Basal cell carcinoma [Recovered/Resolved]
  - Off label use [Unknown]

NARRATIVE: CASE EVENT DATE: 20200319
